FAERS Safety Report 17382641 (Version 2)
Quarter: 2020Q1

REPORT INFORMATION
  Report Type: Other
  Country: US (occurrence: US)
  Receive Date: 20200206
  Receipt Date: 20200206
  Transmission Date: 20200409
  Serious: Yes (Other)
  Sender: FDA-Public Use
  Company Number: US-AMAG PHARMACEUTICALS, INC.-AMAG201905231

PATIENT
  Age: 34 Year
  Sex: Female

DRUGS (1)
  1. MAKENA [Suspect]
     Active Substance: HYDROXYPROGESTERONE CAPROATE
     Indication: PRODUCT USED FOR UNKNOWN INDICATION
     Route: 065

REACTIONS (5)
  - Product administration error [Unknown]
  - Pre-eclampsia [Recovered/Resolved]
  - Uterine spasm [Recovered/Resolved]
  - Injection site pain [Unknown]
  - Induced labour [Recovered/Resolved]

NARRATIVE: CASE EVENT DATE: 201908
